FAERS Safety Report 8582455-4 (Version None)
Quarter: 2012Q3

REPORT INFORMATION
  Report Type: 
  Country: None (occurrence: None)
  Receive Date: 20120809
  Receipt Date: 20120802
  Transmission Date: 20120928
  Serious: Yes (Other)
  Sender: FDA-Public Use
  Company Number: JP-JNJFOC-20120702362

PATIENT
  Sex: Female

DRUGS (3)
  1. FENTANYL-100 [Suspect]
     Route: 062
  2. FENTANYL-100 [Suspect]
     Dosage: 1 PATCH
     Route: 062
     Dates: start: 20120301, end: 20120401
  3. FENTANYL-100 [Suspect]
     Indication: PAIN
     Dosage: 2 PATCHES
     Route: 062

REACTIONS (1)
  - HALLUCINATION [None]
